FAERS Safety Report 12079407 (Version 2)
Quarter: 2016Q1

REPORT INFORMATION
  Report Type: Spontaneous
  Country: FR (occurrence: FR)
  Receive Date: 20160216
  Receipt Date: 20160329
  Transmission Date: 20160526
  Serious: Yes (Death)
  Sender: FDA-Public Use
  Company Number: FR-ELI_LILLY_AND_COMPANY-FR201602004900

PATIENT
  Age: 53 Year
  Sex: Male

DRUGS (8)
  1. BEVITINE [Concomitant]
     Active Substance: THIAMINE
  2. CLOMIPRAMINE [Suspect]
     Active Substance: CLOMIPRAMINE
     Dosage: 75 MG, UNKNOWN
     Route: 048
     Dates: start: 2013
  3. ABTEI MAGNESIUM [Concomitant]
  4. NICOBION [Concomitant]
     Active Substance: NIACINAMIDE
  5. RIVOTRIL [Suspect]
     Active Substance: CLONAZEPAM
     Dosage: 2 MG, BID
     Route: 048
  6. ZOLPIDEM [Suspect]
     Active Substance: ZOLPIDEM\ZOLPIDEM TARTRATE
     Dosage: 10 MG, UNKNOWN
     Route: 048
     Dates: start: 2013
  7. ZYPADHERA [Suspect]
     Active Substance: OLANZAPINE PAMOATE
     Indication: SCHIZOPHRENIA
     Dosage: UNK, UNKNOWN
     Route: 030
     Dates: start: 20131202, end: 20160126
  8. SERESTA [Suspect]
     Active Substance: OXAZEPAM
     Dosage: 50 MG, UNK
     Route: 048
     Dates: start: 2013

REACTIONS (3)
  - Acute coronary syndrome [Fatal]
  - Multiple organ dysfunction syndrome [Fatal]
  - Cardio-respiratory arrest [Fatal]

NARRATIVE: CASE EVENT DATE: 20160208
